FAERS Safety Report 23500421 (Version 1)
Quarter: 2024Q1

REPORT INFORMATION
  Report Type: Report from Study
  Country: US (occurrence: US)
  Receive Date: 20240208
  Receipt Date: 20240208
  Transmission Date: 20240410
  Serious: Yes (Hospitalization, Other)
  Sender: FDA-Public Use
  Company Number: US-BAUSCH-BL-2024-001821

PATIENT
  Age: 68 Year
  Sex: Male
  Weight: 81.6 kg

DRUGS (16)
  1. XIFAXAN [Suspect]
     Active Substance: RIFAXIMIN
     Indication: Hepatic encephalopathy
     Route: 048
     Dates: start: 2021
  2. LACTULOSE [Suspect]
     Active Substance: LACTULOSE
     Indication: Hepatic encephalopathy
     Route: 065
  3. ROCALTROL [Concomitant]
     Active Substance: CALCITRIOL
     Indication: Product used for unknown indication
     Dosage: TAKE 0.25 MCG BY MOUTH DAILY (2 CAPS DAILY)
     Route: 048
  4. COREG [Concomitant]
     Active Substance: CARVEDILOL
     Indication: Gastrooesophageal variceal haemorrhage prophylaxis
     Route: 048
     Dates: start: 20230908, end: 20231212
  5. CYANOCOBALAMIN [Concomitant]
     Active Substance: CYANOCOBALAMIN
     Indication: Product used for unknown indication
     Route: 065
  6. TRUEPLUS GLUCOSE [Concomitant]
     Indication: Product used for unknown indication
     Dosage: CHEW AS DIRECTED
     Route: 065
  7. TRUEPLUS GLUCOSE [Concomitant]
     Dosage: GLUCOSE-VITAMIN C-VITAMIN D. CHEW AS DIRECTED
     Route: 065
     Dates: start: 20220202
  8. IRON [Concomitant]
     Active Substance: IRON
     Indication: Anaemia
     Dosage: WITH BREAKFAST
     Route: 048
     Dates: start: 20161221
  9. FOLVITE [Concomitant]
     Active Substance: FOLIC ACID
     Indication: Product used for unknown indication
     Route: 048
  10. VITAMINS [Concomitant]
     Active Substance: VITAMINS
     Indication: Product used for unknown indication
     Dosage: MEN^S MULTIVITAMIN AND MINERAL
     Route: 048
  11. PROTONIX [Concomitant]
     Active Substance: PANTOPRAZOLE SODIUM
     Indication: Gastric ulcer
     Route: 048
     Dates: start: 20231004
  12. SODIUM BICARBONATE [Concomitant]
     Active Substance: SODIUM BICARBONATE
     Indication: Product used for unknown indication
     Route: 048
  13. ALDACTONE [Concomitant]
     Active Substance: SPIRONOLACTONE
     Indication: Product used for unknown indication
     Route: 048
  14. ALDACTONE [Concomitant]
     Active Substance: SPIRONOLACTONE
     Route: 048
     Dates: start: 20220223
  15. FLOMAX [Concomitant]
     Active Substance: TAMSULOSIN HYDROCHLORIDE
     Indication: Product used for unknown indication
     Dosage: EVERY EVENING
     Route: 048
     Dates: start: 20190814
  16. ERYTHROPOIETIN [Concomitant]
     Active Substance: ERYTHROPOIETIN
     Indication: Anaemia

REACTIONS (9)
  - Hepatic encephalopathy [Unknown]
  - Disease recurrence [Unknown]
  - Hydrocholecystis [Unknown]
  - Portal hypertension [Unknown]
  - Ascites [Unknown]
  - Splenomegaly [Unknown]
  - Anal fistula [Unknown]
  - Flatulence [Unknown]
  - Diarrhoea [Unknown]

NARRATIVE: CASE EVENT DATE: 20210702
